FAERS Safety Report 6908634-7 (Version None)
Quarter: 2010Q3

REPORT INFORMATION
  Report Type: 
  Country: None (occurrence: None)
  Receive Date: 20100719
  Receipt Date: 20091117
  Transmission Date: 20110219
  Serious: Yes (Other)
  Sender: FDA-Public Use
  Company Number: US-WYE-H12227109

PATIENT
  Age: 68 Year
  Sex: Female
  Weight: 72.64 kg

DRUGS (2)
  1. ADVIL LIQUI-GELS [Suspect]
     Indication: PAIN
     Dosage: 2 TABLETS EVERY 8 HOURS OVER 24 HOURS, ORAL
     Route: 048
     Dates: start: 20091101, end: 20091101
  2. PRILOSEC (OMEPRAZOLE) [Concomitant]

REACTIONS (3)
  - EYE SWELLING [None]
  - SWELLING FACE [None]
  - URTICARIA [None]
